FAERS Safety Report 18822938 (Version 1)
Quarter: 2021Q1

REPORT INFORMATION
  Report Type: Report from Study
  Country: US (occurrence: US)
  Receive Date: 20210201
  Receipt Date: 20210201
  Transmission Date: 20210419
  Serious: Yes (Death, Hospitalization, Other)
  Sender: FDA-Public Use
  Company Number: US-009507513-2101USA011231

PATIENT
  Age: 70 Year
  Sex: Female
  Weight: 128.62 kg

DRUGS (5)
  1. ZETIA [Suspect]
     Active Substance: EZETIMIBE
     Dosage: UNK
     Route: 048
  2. SINGULAIR [Suspect]
     Active Substance: MONTELUKAST SODIUM
     Route: 048
  3. COZAAR [Suspect]
     Active Substance: LOSARTAN POTASSIUM
     Dosage: ONE TABLET EVERY MORNING
     Route: 048
  4. KEYTRUDA [Suspect]
     Active Substance: PEMBROLIZUMAB
     Indication: LUNG CARCINOMA CELL TYPE UNSPECIFIED STAGE IV
     Dosage: 200 MILLIGRAM, Q3W
     Route: 042
     Dates: start: 20170227, end: 20201022
  5. PROVENTIL [Suspect]
     Active Substance: ALBUTEROL
     Dosage: 90 MCG TWO PUFFS BY INHALATION,EVERY 4 HOURS AS NEEDED
     Route: 055

REACTIONS (26)
  - Cataract [Unknown]
  - Respiratory failure [Unknown]
  - Impaired self-care [Unknown]
  - Exposure to SARS-CoV-2 [Unknown]
  - Atrial fibrillation [Unknown]
  - Hypercapnia [Unknown]
  - Dyspnoea [Unknown]
  - Anaemia [Unknown]
  - Oedema peripheral [Unknown]
  - Pulmonary toxicity [Unknown]
  - Death [Fatal]
  - Chronic obstructive pulmonary disease [Unknown]
  - Pneumonia [Recovering/Resolving]
  - Inflammation [Unknown]
  - Malignant neoplasm progression [Unknown]
  - Cardiac pacemaker insertion [Unknown]
  - Adverse event [Unknown]
  - Acute respiratory failure [Unknown]
  - Infection [Unknown]
  - Hypoxia [Unknown]
  - Anxiety [Unknown]
  - Quarantine [Unknown]
  - Respiratory disorder [Recovered/Resolved]
  - Inappropriate schedule of product administration [Unknown]
  - Cardiac failure chronic [Unknown]
  - Dysphagia [Unknown]

NARRATIVE: CASE EVENT DATE: 20180530
